FAERS Safety Report 8563732 (Version 2)
Quarter: 2012Q4

REPORT INFORMATION
  Report Type: 
  Country: ZA (occurrence: ZA)
  Receive Date: 20120515
  Receipt Date: 20120908
  Transmission Date: 20130627
  Serious: Yes (Disabling)
  Sender: FDA-Public Use
  Company Number: ZA-B.I. PHARMACEUTICALS,INC./RIDGEFIELD-2012-AP-00332ZA

PATIENT
  Age: 85 Year
  Sex: Male

DRUGS (4)
  1. PRADAXA [Suspect]
     Indication: KNEE ARTHROPLASTY
     Dosage: 150 mg
  2. TRAMACET [Concomitant]
  3. TREPALINE [Concomitant]
  4. STATIN [Concomitant]

REACTIONS (4)
  - Haemorrhage [Not Recovered/Not Resolved]
  - Oedema peripheral [Not Recovered/Not Resolved]
  - Contusion [Not Recovered/Not Resolved]
  - Product quality issue [Unknown]
